FAERS Safety Report 7911653-5 (Version None)
Quarter: 2011Q4

REPORT INFORMATION
  Report Type: 
  Country: None (occurrence: None)
  Receive Date: 20111114
  Receipt Date: 20111114
  Transmission Date: 20120403
  Serious: Yes (Hospitalization, Other)
  Sender: FDA-Public Use
  Company Number: None

PATIENT
  Age: 75 Year
  Sex: Female

DRUGS (4)
  1. FLUOXETINE HCL [Concomitant]
  2. AMITRIPTYLINE HCL [Concomitant]
  3. PROTINIX [Concomitant]
  4. LEVOFLOXACIN [Suspect]
     Indication: PYREXIA
     Route: 048
     Dates: start: 20111016, end: 20111023

REACTIONS (7)
  - TENDONITIS [None]
  - FALL [None]
  - PAIN IN EXTREMITY [None]
  - COGNITIVE DISORDER [None]
  - MUSCULOSKELETAL CHEST PAIN [None]
  - SUBDURAL HAEMATOMA [None]
  - HEAD INJURY [None]
